FAERS Safety Report 6397779-9 (Version None)
Quarter: 2009Q4

REPORT INFORMATION
  Report Type: 
  Country: None (occurrence: None)
  Receive Date: 20091012
  Receipt Date: 20091005
  Transmission Date: 20100525
  Serious: Yes (Hospitalization)
  Sender: FDA-Public Use
  Company Number: US-KINGPHARMUSA00001-K200901233

PATIENT
  Age: 60 Year
  Sex: Male

DRUGS (7)
  1. ALTACE [Suspect]
     Dosage: 10 MG, QD
     Route: 048
     Dates: end: 20090827
  2. HYDROCHLOROTHIAZIDE [Suspect]
     Dosage: 25 MG, QD
     Route: 048
     Dates: end: 20090827
  3. TAVANIC [Suspect]
     Dosage: 1000 MG, QD
     Route: 048
     Dates: end: 20090827
  4. PREVISCAN [Suspect]
     Dosage: UNK, QD
     Dates: end: 20090826
  5. BRISTOPEN [Suspect]
     Dosage: 2 G, QHS
     Route: 042
     Dates: end: 20090827
  6. FUROSEMIDE BIOGARAN [Suspect]
     Dosage: 40 MG, QD
     Route: 048
     Dates: end: 20090827
  7. METFORMINE BIOGARAN [Suspect]
     Indication: TYPE 2 DIABETES MELLITUS
     Dosage: 1000 MG, QD
     Route: 048
     Dates: end: 20090827

REACTIONS (8)
  - ANAEMIA [None]
  - ERYTHROPOIESIS ABNORMAL [None]
  - HEPATOMEGALY [None]
  - LEUKOPENIA [None]
  - MYELODYSPLASTIC SYNDROME [None]
  - RENAL FAILURE ACUTE [None]
  - SPLENOMEGALY [None]
  - THROMBOCYTOPENIA [None]
